FAERS Safety Report 7973395 (Version 4)
Quarter: 2013Q3

REPORT INFORMATION
  Report Type: Spontaneous
  Country: US (occurrence: US)
  Receive Date: 20110603
  Receipt Date: 20130917
  Transmission Date: 20140515
  Serious: Yes (Hospitalization)
  Sender: FDA-Public Use
  Company Number: US-BAYER-2011-047162

PATIENT
  Age: 34 Year
  Sex: Female
  Weight: 63 kg

DRUGS (13)
  1. YASMIN [Suspect]
     Indication: CONTRACEPTION
     Dosage: UNK
     Route: 048
     Dates: start: 200501, end: 200902
  2. YASMIN [Suspect]
     Indication: ACNE
  3. NORTRIPTYLINE [Concomitant]
     Indication: PAIN MANAGEMENT
     Dosage: UNK
     Dates: start: 2004
  4. NORCO [Concomitant]
     Indication: PAIN MANAGEMENT
     Dosage: UNK
     Dates: start: 2004
  5. CIPRO [Concomitant]
  6. XANAX [Concomitant]
  7. PROPRANOLOL [Concomitant]
  8. MECLIZINE [Concomitant]
  9. AMOXICILLIN W/CLAVULANATE POTASSIUM [Concomitant]
  10. CEPHALEXIN [Concomitant]
  11. FLUTICASONE [Concomitant]
     Indication: CHRONIC SINUSITIS
  12. FLUOXETINE [Concomitant]
  13. DILAUDID [Concomitant]
     Indication: PAIN

REACTIONS (9)
  - Colitis ischaemic [None]
  - Thrombosis [None]
  - Injury [None]
  - Pain [None]
  - Emotional distress [None]
  - Psychological trauma [None]
  - Anxiety [None]
  - Anhedonia [None]
  - Fear [None]
